FAERS Safety Report 19841173 (Version 4)
Quarter: 2022Q4

REPORT INFORMATION
  Report Type: Report from Study
  Country: CA (occurrence: CA)
  Receive Date: 20210916
  Receipt Date: 20221012
  Transmission Date: 20230113
  Serious: Yes (Other)
  Sender: FDA-Public Use
  Company Number: CA-JNJFOC-20210715971

PATIENT
  Age: 14 Year
  Sex: Male
  Weight: 58.8 kg

DRUGS (4)
  1. REMICADE [Suspect]
     Active Substance: INFLIXIMAB
     Indication: Crohn^s disease
     Route: 042
     Dates: start: 20210722
  2. REMICADE [Suspect]
     Active Substance: INFLIXIMAB
     Dosage: 600 MG STARTING IN WEEK 6 AND Q 8 WEEK THEREAFTER
     Route: 042
  3. REMICADE [Suspect]
     Active Substance: INFLIXIMAB
     Dosage: STAT DOSE WITH 300 MG REQUESTED.
     Route: 042
     Dates: start: 20210914
  4. REMICADE [Suspect]
     Active Substance: INFLIXIMAB
     Route: 042
     Dates: end: 20221003

REACTIONS (6)
  - Crohn^s disease [Not Recovered/Not Resolved]
  - Intestinal stenosis [Unknown]
  - Antibiotic therapy [Unknown]
  - Off label use [Unknown]
  - Incorrect dose administered [Unknown]
  - Product use issue [Unknown]

NARRATIVE: CASE EVENT DATE: 20210101
